FAERS Safety Report 19499024 (Version 1)
Quarter: 2021Q3

REPORT INFORMATION
  Report Type: Spontaneous
  Country: US (occurrence: US)
  Receive Date: 20210707
  Receipt Date: 20210707
  Transmission Date: 20211014
  Serious: Yes (Hospitalization)
  Sender: FDA-Public Use
  Company Number: US-MANNKIND CORPORATION-2021MK000092

PATIENT
  Age: 30 Year
  Sex: Male
  Weight: 83.99 kg

DRUGS (2)
  1. AFREZZA [Suspect]
     Active Substance: INSULIN HUMAN
     Indication: TYPE 1 DIABETES MELLITUS
  2. TRESIBA [Concomitant]
     Active Substance: INSULIN DEGLUDEC
     Indication: TYPE 1 DIABETES MELLITUS

REACTIONS (6)
  - Fall [Recovered/Resolved]
  - Femur fracture [Unknown]
  - Joint dislocation [Unknown]
  - Joint injury [Unknown]
  - Blood glucose increased [Unknown]
  - Intentional underdose [Unknown]
